FAERS Safety Report 20721972 (Version 1)
Quarter: 2022Q2

REPORT INFORMATION
  Report Type: Spontaneous
  Country: IT (occurrence: IT)
  Receive Date: 20220418
  Receipt Date: 20220418
  Transmission Date: 20220721
  Serious: Yes (Hospitalization, Other)
  Sender: FDA-Public Use
  Company Number: IT-LUPIN PHARMACEUTICALS INC.-2022-05713

PATIENT
  Age: 2 Year
  Sex: Male

DRUGS (15)
  1. METHYLPREDNISOLONE [Suspect]
     Active Substance: METHYLPREDNISOLONE
     Indication: Immunosuppressant drug therapy
     Dosage: 2 MILLIGRAM/KILOGRAM, QD
     Route: 065
  2. METHYLPREDNISOLONE [Suspect]
     Active Substance: METHYLPREDNISOLONE
     Indication: Graft versus host disease in gastrointestinal tract
  3. BEGELOMAB [Suspect]
     Active Substance: BEGELOMAB
     Indication: Immunosuppressant drug therapy
     Dosage: UNK
     Route: 065
  4. BEGELOMAB [Suspect]
     Active Substance: BEGELOMAB
     Indication: Graft versus host disease in gastrointestinal tract
  5. FLUDARABINE [Suspect]
     Active Substance: FLUDARABINE PHOSPHATE
     Indication: Immunosuppressant drug therapy
     Dosage: 30 MILLIGRAM/SQ. METER, QD
     Route: 065
  6. MYCOPHENOLATE MOFETIL [Suspect]
     Active Substance: MYCOPHENOLATE MOFETIL
     Indication: Immunosuppressant drug therapy
     Dosage: UNK
     Route: 065
  7. MYCOPHENOLATE MOFETIL [Suspect]
     Active Substance: MYCOPHENOLATE MOFETIL
     Indication: Graft versus host disease in gastrointestinal tract
  8. RUXOLITINIB [Suspect]
     Active Substance: RUXOLITINIB
     Indication: Immunosuppressant drug therapy
     Dosage: UNK
     Route: 065
  9. RUXOLITINIB [Suspect]
     Active Substance: RUXOLITINIB
     Indication: Graft versus host disease in gastrointestinal tract
  10. TREOSULFAN [Suspect]
     Active Substance: TREOSULFAN
     Indication: Immunosuppressant drug therapy
     Dosage: 12 GRAM PER SQUARE METRE, QD
     Route: 065
  11. USTEKINUMAB [Suspect]
     Active Substance: USTEKINUMAB
     Indication: Immunosuppressant drug therapy
     Dosage: UNK
     Route: 065
  12. USTEKINUMAB [Suspect]
     Active Substance: USTEKINUMAB
     Indication: Graft versus host disease in gastrointestinal tract
  13. PREDNISONE [Suspect]
     Active Substance: PREDNISONE
     Indication: Immunosuppressant drug therapy
     Dosage: 1 MILLIGRAM PER KILOGRAM , QD
     Route: 065
  14. CYCLOSPORINE [Suspect]
     Active Substance: CYCLOSPORINE
     Indication: Immunosuppressant drug therapy
     Dosage: 2 MILLIGRAM PER KILOGRAM, QD
     Route: 042
  15. THYMOCYTE IMMUNE GLOBULIN NOS [Concomitant]
     Active Substance: THYMOCYTE IMMUNE GLOBULIN NOS
     Indication: Immunosuppressant drug therapy
     Dosage: 2.5 MILLIGRAM/KILOGRAM, QD
     Route: 065

REACTIONS (5)
  - Pneumatosis intestinalis [Recovering/Resolving]
  - Pancreatitis acute [Recovering/Resolving]
  - Pneumoretroperitoneum [Unknown]
  - Pneumomediastinum [Unknown]
  - Therapy non-responder [Unknown]
